FAERS Safety Report 8518463-9 (Version None)
Quarter: 2012Q3

REPORT INFORMATION
  Report Type: 
  Country: None (occurrence: None)
  Receive Date: 20120718
  Receipt Date: 20120405
  Transmission Date: 20120928
  Serious: No
  Sender: FDA-Public Use
  Company Number: US-BRISTOL-MYERS SQUIBB COMPANY-16470486

PATIENT
  Age: 62 Year
  Sex: Female

DRUGS (6)
  1. COUMADIN [Suspect]
     Indication: DEEP VEIN THROMBOSIS
     Dates: start: 20120101
  2. MAGNESIUM SULFATE [Concomitant]
  3. CALCIUM + VITAMIN D [Concomitant]
  4. AMITRIPTYLINE HYDROCHLORIDE [Concomitant]
  5. LOVENOX [Suspect]
     Indication: DEEP VEIN THROMBOSIS
     Dates: start: 20120101, end: 20120101
  6. RIBOFLAVIN CAP [Concomitant]

REACTIONS (1)
  - INTERNATIONAL NORMALISED RATIO ABNORMAL [None]
